FAERS Safety Report 6210223-7 (Version None)
Quarter: 2009Q2

REPORT INFORMATION
  Report Type: 
  Country: None (occurrence: None)
  Receive Date: 20090601
  Receipt Date: 20090526
  Transmission Date: 20091009
  Serious: Yes (Life-Threatening)
  Sender: FDA-Public Use
  Company Number: JP-MERCK-0905USA03958

PATIENT
  Age: 70 Year
  Sex: Male

DRUGS (1)
  1. HYZAAR [Suspect]
     Indication: HYPERTENSION
     Route: 048
     Dates: start: 20090401, end: 20090519

REACTIONS (1)
  - BLOOD CREATINE PHOSPHOKINASE INCREASED [None]
